FAERS Safety Report 19665478 (Version 1)
Quarter: 2021Q3

REPORT INFORMATION
  Report Type: Spontaneous
  Country: US (occurrence: US)
  Receive Date: 20210806
  Receipt Date: 20210806
  Transmission Date: 20211014
  Serious: Yes (Other)
  Sender: FDA-Public Use
  Company Number: US-SAMSUNG BIOEPIS-SB-2021-18467

PATIENT
  Age: 31 Year
  Sex: Male

DRUGS (12)
  1. TACROLIMUS. [Concomitant]
     Active Substance: TACROLIMUS
     Route: 048
  2. TACROLIMUS. [Concomitant]
     Active Substance: TACROLIMUS
     Route: 048
  3. INFLIXIMAB [Suspect]
     Active Substance: INFLIXIMAB
     Route: 042
     Dates: start: 201701
  4. TACROLIMUS. [Concomitant]
     Active Substance: TACROLIMUS
     Route: 048
  5. BACTRIM [Concomitant]
     Active Substance: SULFAMETHOXAZOLE\TRIMETHOPRIM
     Indication: ANTIFUNGAL PROPHYLAXIS
     Dosage: UNKNOWN
     Route: 065
  6. INFLIXIMAB [Suspect]
     Active Substance: INFLIXIMAB
     Indication: CROHN^S DISEASE
     Route: 065
     Dates: start: 201605
  7. INFLIXIMAB [Suspect]
     Active Substance: INFLIXIMAB
     Route: 042
     Dates: start: 201803
  8. TACROLIMUS. [Concomitant]
     Active Substance: TACROLIMUS
     Route: 048
  9. TACROLIMUS. [Concomitant]
     Active Substance: TACROLIMUS
     Dosage: QAM (EVERY MORNING)
     Route: 048
  10. AZATHIOPRINE. [Concomitant]
     Active Substance: AZATHIOPRINE
     Indication: CROHN^S DISEASE
     Dosage: UNKNOWN
     Route: 065
     Dates: start: 201605
  11. TACROLIMUS. [Concomitant]
     Active Substance: TACROLIMUS
     Indication: CROHN^S DISEASE
     Route: 048
     Dates: start: 20171025
  12. TACROLIMUS. [Concomitant]
     Active Substance: TACROLIMUS
     Dosage: QPM (EVERY NIGHT)
     Route: 048

REACTIONS (9)
  - Intestinal obstruction [Unknown]
  - Hypoalbuminaemia [Recovered/Resolved]
  - Drug level below therapeutic [Recovered/Resolved]
  - Loss of therapeutic response [Unknown]
  - Crohn^s disease [Recovering/Resolving]
  - Blood creatinine increased [Recovered/Resolved]
  - Drug clearance increased [Unknown]
  - Drug specific antibody absent [Unknown]
  - Anaemia [Recovered/Resolved]

NARRATIVE: CASE EVENT DATE: 201701
